FAERS Safety Report 11864139 (Version 3)
Quarter: 2018Q3

REPORT INFORMATION
  Report Type: Spontaneous
  Country: AU (occurrence: AU)
  Receive Date: 20151223
  Receipt Date: 20180717
  Transmission Date: 20181010
  Serious: Yes (Hospitalization)
  Sender: FDA-Public Use
  Company Number: AU-DRREDDYS-USA/AUS/15/0054930

PATIENT
  Age: 59 Year
  Sex: Female

DRUGS (5)
  1. QUETIAPINE. [Interacting]
     Active Substance: QUETIAPINE
     Route: 065
  2. RISPERIDONE. [Suspect]
     Active Substance: RISPERIDONE
     Indication: PSYCHOTIC DISORDER
     Route: 065
  3. LORAZEPAM. [Concomitant]
     Active Substance: LORAZEPAM
     Indication: PRODUCT USED FOR UNKNOWN INDICATION
     Route: 065
  4. SERTRALINE [Interacting]
     Active Substance: SERTRALINE HYDROCHLORIDE
     Indication: DEPRESSIVE SYMPTOM
     Route: 065
  5. QUETIAPINE. [Interacting]
     Active Substance: QUETIAPINE
     Indication: PSYCHOTIC DISORDER
     Route: 065

REACTIONS (10)
  - Muscle rigidity [Unknown]
  - Drug interaction [Unknown]
  - Parkinsonism [Recovered/Resolved]
  - Torticollis [Unknown]
  - Decreased activity [Unknown]
  - Social avoidant behaviour [Recovering/Resolving]
  - Catatonia [Recovered/Resolved]
  - Rebound psychosis [Recovering/Resolving]
  - Negativism [Recovering/Resolving]
  - Mutism [Recovering/Resolving]
